FAERS Safety Report 10916455 (Version 1)
Quarter: 2015Q1

REPORT INFORMATION
  Report Type: Spontaneous
  Country: IT (occurrence: IT)
  Receive Date: 20150316
  Receipt Date: 20150316
  Transmission Date: 20150721
  Serious: Yes (Life-Threatening)
  Sender: FDA-Public Use
  Company Number: IT-ACTAVIS-2015-04980

PATIENT
  Age: 39 Year
  Sex: Female
  Weight: 40 kg

DRUGS (4)
  1. EMEND [Concomitant]
     Active Substance: APREPITANT
     Indication: VOMITING
     Dosage: UNK UNK, UNKNOWN
     Route: 048
     Dates: start: 20150223, end: 20150223
  2. HYDROCORTISONE SODIUM [Concomitant]
     Indication: VOMITING
     Dosage: UNK UNK, UNKNOWN
     Route: 042
     Dates: start: 20150223, end: 20150223
  3. PACLITAXEL ACTAVIS [Suspect]
     Active Substance: PACLITAXEL
     Indication: OVARIAN CANCER
     Dosage: UNK UNK, UNKNOWN
     Route: 042
     Dates: start: 20150223, end: 20150223
  4. ONDANSETRON HYDROCHLORIDE DIHYDRATE [Concomitant]
     Active Substance: ONDANSETRON HYDROCHLORIDE
     Indication: VOMITING
     Dosage: UNK UNK, UNKNOWN
     Route: 042
     Dates: start: 20150223, end: 20150223

REACTIONS (3)
  - Dyspnoea [Recovered/Resolved]
  - Bronchospasm [Recovered/Resolved]
  - Erythema [Recovered/Resolved]

NARRATIVE: CASE EVENT DATE: 20150223
